FAERS Safety Report 18585226 (Version 1)
Quarter: 2020Q4

REPORT INFORMATION
  Report Type: Spontaneous
  Country: US (occurrence: US)
  Receive Date: 20201204
  Receipt Date: 20201204
  Transmission Date: 20210114
  Serious: Yes (Disabling)
  Sender: FDA-Public Use
  Company Number: None

PATIENT
  Age: 25 Year
  Sex: Female
  Weight: 56.25 kg

DRUGS (1)
  1. CLONAZEPAM, GENERIC FOR KLONOPIN [Suspect]
     Active Substance: CLONAZEPAM
     Indication: SOCIAL ANXIETY DISORDER
     Dosage: ?          QUANTITY:60 TABLET(S);?
     Route: 048
     Dates: start: 20120101, end: 20190315

REACTIONS (23)
  - Vestibular migraine [None]
  - Balance disorder [None]
  - Tremor [None]
  - Back pain [None]
  - Drug dependence [None]
  - Vomiting [None]
  - Weight decreased [None]
  - Fear [None]
  - Facial discomfort [None]
  - Discomfort [None]
  - Visual impairment [None]
  - Drug tolerance [None]
  - Depersonalisation/derealisation disorder [None]
  - Migraine with aura [None]
  - Paranoia [None]
  - Myalgia [None]
  - Muscle twitching [None]
  - Tinnitus [None]
  - Derealisation [None]
  - Insomnia [None]
  - Drug withdrawal syndrome [None]
  - Vertigo [None]
  - Palpitations [None]

NARRATIVE: CASE EVENT DATE: 20190909
